FAERS Safety Report 7071065-6 (Version None)
Quarter: 2010Q4

REPORT INFORMATION
  Report Type: 
  Country: None (occurrence: None)
  Receive Date: 20101029
  Receipt Date: 20101020
  Transmission Date: 20110411
  Serious: No
  Sender: FDA-Public Use
  Company Number: US-PFIZER INC-2010105340

PATIENT
  Sex: Female
  Weight: 68.027 kg

DRUGS (7)
  1. ZOLOFT [Suspect]
     Indication: DEPRESSION
     Dosage: 50 MG, UNK
  2. ZOLOFT [Suspect]
     Dosage: 200 MG DAILY
     Dates: start: 20060901
  3. PRISTIQ [Suspect]
     Indication: DEPRESSION
     Dosage: 50 MG, UNK
     Route: 048
  4. AMBIEN [Suspect]
     Indication: SLEEP DISORDER
     Dosage: UNK
  5. VICODIN [Concomitant]
     Indication: PAIN
     Dosage: UNK, OCASSIONALY
  6. ADDERALL 10 [Concomitant]
     Dosage: UNK
  7. TRILAFON [Concomitant]
     Dosage: UNK

REACTIONS (5)
  - CENTRAL NERVOUS SYSTEM STIMULATION [None]
  - DIZZINESS [None]
  - FATIGUE [None]
  - HEADACHE [None]
  - SEDATION [None]
